FAERS Safety Report 5151612-1 (Version None)
Quarter: 2006Q4

REPORT INFORMATION
  Report Type: 
  Country: None (occurrence: None)
  Receive Date: 20061115
  Receipt Date: 20060427
  Transmission Date: 20070319
  Serious: No
  Sender: FDA-Public Use
  Company Number: US-BRISTOL-MYERS SQUIBB COMPANY-13359476

PATIENT
  Age: 42 Year
  Sex: Female
  Weight: 58 kg

DRUGS (7)
  1. SUSTIVA [Suspect]
     Indication: HIV INFECTION
  2. ZERIT [Concomitant]
  3. EPIVIR [Concomitant]
  4. ALLEGRA-D 12 HOUR [Concomitant]
  5. FLOVENT [Concomitant]
  6. METFORMIN HCL [Concomitant]
  7. SINGULAIR [Concomitant]

REACTIONS (1)
  - FUNGAL INFECTION [None]
